FAERS Safety Report 13335364 (Version 2)
Quarter: 2018Q3

REPORT INFORMATION
  Report Type: Report from Study
  Country: US (occurrence: US)
  Receive Date: 20170314
  Receipt Date: 20180925
  Transmission Date: 20181010
  Serious: No
  Sender: FDA-Public Use
  Company Number: PHEH2017US007516

PATIENT
  Age: 68 Year
  Sex: Male

DRUGS (1)
  1. ENTRESTO [Suspect]
     Active Substance: SACUBITRIL\VALSARTAN
     Indication: PRODUCT USED FOR UNKNOWN INDICATION
     Dosage: 100 MG (SACUBITRIL 49MG AND VALSARTAN 51MG), BID
     Route: 048

REACTIONS (2)
  - Blood cholesterol increased [Unknown]
  - Palpitations [Unknown]

NARRATIVE: CASE EVENT DATE: 20170213
